FAERS Safety Report 9710665 (Version 1)
Quarter: 2013Q4

REPORT INFORMATION
  Report Type: Spontaneous
  Country: US (occurrence: US)
  Receive Date: 20131126
  Receipt Date: 20131126
  Transmission Date: 20140711
  Serious: No
  Sender: FDA-Public Use
  Company Number: US-BRISTOL-MYERS SQUIBB COMPANY-19006352

PATIENT
  Sex: Female

DRUGS (2)
  1. BYDUREON [Suspect]
     Dosage: CURRENT BOX OF BYDUREON: UPC 66780 02 1904
  2. NOVOLOG [Concomitant]
     Dosage: NOVLOG 70/30 THERAPY

REACTIONS (1)
  - Injection site haemorrhage [Unknown]
